FAERS Safety Report 9429148 (Version 3)
Quarter: 2013Q3

REPORT INFORMATION
  Report Type: Spontaneous
  Country: JP (occurrence: JP)
  Receive Date: 20130730
  Receipt Date: 20130913
  Transmission Date: 20140515
  Serious: Yes (Hospitalization)
  Sender: FDA-Public Use
  Company Number: JP-VERTEX PHARMACEUTICALS INC-2013-008038

PATIENT
  Age: 66 Year
  Sex: Female

DRUGS (9)
  1. TELAVIC [Suspect]
     Indication: CHRONIC HEPATITIS C
     Dosage: 1500 MG, QD
     Route: 048
     Dates: start: 20130522, end: 20130710
  2. REBETOL [Suspect]
     Indication: CHRONIC HEPATITIS C
     Dosage: 800 MG, QD
     Route: 048
     Dates: start: 20130522, end: 20130618
  3. REBETOL [Suspect]
     Dosage: 400 MG, QD
     Route: 048
     Dates: start: 20130619
  4. PEGINTRON [Concomitant]
     Dosage: 1.5 ?G/KG, QW
     Route: 058
     Dates: start: 20130522, end: 20130717
  5. PEGINTRON [Concomitant]
     Dosage: 1.21 ?G/KG, QW
     Route: 058
     Dates: start: 20130724, end: 20130731
  6. PEGINTRON [Concomitant]
     Dosage: 0.91 ?G/KG, UNK
     Route: 058
     Dates: start: 20120807
  7. NEXIUM [Concomitant]
     Dosage: 20 MG, QD
     Route: 048
  8. ALLEGRA [Concomitant]
     Dosage: 120 MG, QD
     Route: 048
     Dates: start: 20130522
  9. LOXONIN [Concomitant]
     Dosage: 120 MG, QD
     Route: 048
     Dates: start: 20130522

REACTIONS (3)
  - Face oedema [Recovered/Resolved]
  - Oedema peripheral [Recovered/Resolved]
  - Toxic skin eruption [Recovered/Resolved]
